FAERS Safety Report 7805192-X (Version None)
Quarter: 2011Q4

REPORT INFORMATION
  Report Type: 
  Country: None (occurrence: None)
  Receive Date: 20111010
  Receipt Date: 20110927
  Transmission Date: 20120403
  Serious: Yes (Life-Threatening, Hospitalization)
  Sender: FDA-Public Use
  Company Number: US-AMGEN-USASP2011040807

PATIENT
  Age: 58 Year
  Sex: Female

DRUGS (2)
  1. ENBREL [Suspect]
     Indication: PSORIATIC ARTHROPATHY
     Dosage: 50 MG, QWK
     Dates: start: 20040501, end: 20050101
  2. ENBREL [Suspect]
     Indication: PSORIASIS

REACTIONS (7)
  - ADVERSE DRUG REACTION [None]
  - SPINAL OPERATION [None]
  - PSORIATIC ARTHROPATHY [None]
  - ASTHENIA [None]
  - CARDIAC ARREST [None]
  - PERIPHERAL NERVE INJECTION [None]
  - PSORIASIS [None]
